FAERS Safety Report 4493403-0 (Version None)
Quarter: 2004Q4

REPORT INFORMATION
  Report Type: 
  Country: None (occurrence: None)
  Receive Date: 20041102
  Receipt Date: 20041026
  Transmission Date: 20050328
  Serious: Yes (Disabling)
  Sender: FDA-Public Use
  Company Number: A0518764A

PATIENT
  Age: 45 Year
  Sex: Female

DRUGS (9)
  1. DEXEDRINE [Suspect]
     Indication: DEPRESSION
     Dosage: 5 MG/ SEE DOSAGE TEXT/ORAL
     Route: 048
  2. ADDERALL 10 [Suspect]
     Indication: SLEEP DISORDER
  3. SIBUTRAMINE HYDROCHLORIDE (SIBUTRAMINE HYDROCHLORIDE) [Suspect]
     Dosage: 10 MG
  4. PAROXETINE HYDROCHLORIDE [Concomitant]
  5. CIPROFLOXACIN [Concomitant]
  6. LEXAPRO [Concomitant]
  7. VICODIN [Concomitant]
  8. VENLAFAXINE HYDROCHLORIDE [Concomitant]
  9. DIAZEPAM [Concomitant]

REACTIONS (15)
  - CARDIOMEGALY [None]
  - CHEST PAIN [None]
  - COUGH [None]
  - DILATATION VENTRICULAR [None]
  - DISCOMFORT [None]
  - DYSPNOEA EXERTIONAL [None]
  - FATIGUE [None]
  - INSOMNIA [None]
  - PALPITATIONS [None]
  - PULMONARY HYPERTENSION [None]
  - PYREXIA [None]
  - RESPIRATORY DISTRESS [None]
  - SENSATION OF PRESSURE [None]
  - TRICUSPID VALVE INCOMPETENCE [None]
  - VIRAL UPPER RESPIRATORY TRACT INFECTION [None]
